FAERS Safety Report 12092999 (Version 2)
Quarter: 2016Q2

REPORT INFORMATION
  Report Type: Spontaneous
  Country: US (occurrence: US)
  Receive Date: 20160219
  Receipt Date: 20160530
  Transmission Date: 20160815
  Serious: Yes (Other)
  Sender: FDA-Public Use
  Company Number: US-PFIZER INC-2016087048

PATIENT
  Age: 78 Year
  Sex: Male

DRUGS (3)
  1. SUTENT [Suspect]
     Active Substance: SUNITINIB MALATE
     Indication: METASTATIC RENAL CELL CARCINOMA
     Dosage: 50 MG, CYCLIC, (4/2 SCHEDULE, 4 WEEKS ON AND 2 WEEKS OFF)/  (QD X 28 D WITH 14 D REST PERIOD)
     Route: 048
     Dates: start: 20140717, end: 201508
  2. AMLODIPINE [Concomitant]
     Active Substance: AMLODIPINE BESYLATE
     Indication: HYPERTENSION
  3. ATORVASTATIN [Concomitant]
     Active Substance: ATORVASTATIN
     Indication: HYPERLIPIDAEMIA

REACTIONS (11)
  - Wound dehiscence [Recovered/Resolved]
  - Gastrooesophageal reflux disease [Recovered/Resolved]
  - Quality of life decreased [Recovering/Resolving]
  - Blood pressure increased [Recovered/Resolved]
  - Hypertension [Recovered/Resolved]
  - Hand-foot-and-mouth disease [Recovered/Resolved]
  - Mucosal inflammation [Unknown]
  - Oral pain [Recovered/Resolved]
  - Diarrhoea [Recovered/Resolved]
  - Fatigue [Recovered/Resolved]
  - Dysgeusia [Recovered/Resolved]

NARRATIVE: CASE EVENT DATE: 20140812
